FAERS Safety Report 15931653 (Version 1)
Quarter: 2019Q1

REPORT INFORMATION
  Report Type: Spontaneous
  Country: US (occurrence: US)
  Receive Date: 20190207
  Receipt Date: 20190207
  Transmission Date: 20190417
  Serious: No
  Sender: FDA-Public Use
  Company Number: US-TEVA-2019-US-1010192

PATIENT
  Age: 51 Year
  Sex: Female
  Weight: 106 kg

DRUGS (13)
  1. NUVIGIL [Suspect]
     Active Substance: ARMODAFINIL
     Route: 065
  2. CAMBIA [Concomitant]
     Active Substance: DICLOFENAC POTASSIUM
  3. VITAMIN D2 [Concomitant]
     Active Substance: ERGOCALCIFEROL
  4. SINGULAIR [Concomitant]
     Active Substance: MONTELUKAST SODIUM
  5. LAMOTRIGINE. [Concomitant]
     Active Substance: LAMOTRIGINE
  6. LEVOTHYROXINE. [Concomitant]
     Active Substance: LEVOTHYROXINE
  7. METOCLOPRAMIDE. [Concomitant]
     Active Substance: METOCLOPRAMIDE
  8. FIORICET [Concomitant]
     Active Substance: ACETAMINOPHEN\BUTALBITAL\CAFFEINE
  9. LITHIUM CARBONATE ER [Concomitant]
     Active Substance: LITHIUM CARBONATE
  10. SIMVASTATIN. [Concomitant]
     Active Substance: SIMVASTATIN
  11. ACETAZOLAMIDE. [Concomitant]
     Active Substance: ACETAZOLAMIDE
  12. VALPRON [Concomitant]
  13. AJOVY [Suspect]
     Active Substance: FREMANEZUMAB-VFRM
     Dates: start: 20181005

REACTIONS (2)
  - Arthralgia [Unknown]
  - Bone pain [Unknown]

NARRATIVE: CASE EVENT DATE: 20181012
